FAERS Safety Report 6116503-8 (Version None)
Quarter: 2009Q1

REPORT INFORMATION
  Report Type: 
  Country: None (occurrence: None)
  Receive Date: 20090314
  Receipt Date: 20081212
  Transmission Date: 20090719
  Serious: No
  Sender: FDA-Public Use
  Company Number: US-ABBOTT-08P-163-0493203-00

PATIENT
  Sex: Male

DRUGS (5)
  1. HUMIRA [Suspect]
     Indication: CROHN'S DISEASE
     Dates: start: 20080701
  2. TETANUS SHOT [Concomitant]
     Indication: DRUG USE FOR UNKNOWN INDICATION
  3. HEPATITIS A SHOT [Concomitant]
     Indication: DRUG USE FOR UNKNOWN INDICATION
  4. FLU SHOT [Concomitant]
     Indication: DRUG USE FOR UNKNOWN INDICATION
  5. ASACOL [Concomitant]
     Indication: DRUG USE FOR UNKNOWN INDICATION

REACTIONS (9)
  - DIARRHOEA [None]
  - DYSGEUSIA [None]
  - ERUCTATION [None]
  - FAECES PALE [None]
  - GALLBLADDER DISORDER [None]
  - GALLBLADDER ENLARGEMENT [None]
  - INJECTION SITE REACTION [None]
  - INJECTION SITE SWELLING [None]
  - NAUSEA [None]
